FAERS Safety Report 9798092 (Version 1)
Quarter: 2014Q1

REPORT INFORMATION
  Report Type: Spontaneous
  Country: GR (occurrence: None)
  Receive Date: 20140102
  Receipt Date: 20140102
  Transmission Date: 20141002
  Serious: Yes (Hospitalization)
  Sender: FDA-Public Use
  Company Number: VAL_02875_2013

PATIENT
  Age: 5 Day
  Sex: Male

DRUGS (1)
  1. METHYLERGOMETRINE (METHYLERGOMETRINE- MALEATE) 0.2MG [Suspect]
     Indication: ACCIDENTAL EXPOSURE TO PRODUCT BY CHILD
     Dosage: 1 DAY UNTIL NOT CONTINUING
     Route: 048

REACTIONS (15)
  - Caesarean section [None]
  - Arteriospasm coronary [None]
  - Ergot poisoning [None]
  - Pallor [None]
  - Cyanosis [None]
  - Irritability [None]
  - Blood gases abnormal [None]
  - Troponin increased [None]
  - Toxicity to various agents [None]
  - Electrocardiogram ST segment depression [None]
  - Troponin T increased [None]
  - Blood creatine phosphokinase increased [None]
  - Blood creatine phosphokinase MB increased [None]
  - Livedo reticularis [None]
  - Vasospasm [None]
